FAERS Safety Report 9311443 (Version 2)
Quarter: 2013Q2

REPORT INFORMATION
  Report Type: Spontaneous
  Country: RO (occurrence: RO)
  Receive Date: 20130528
  Receipt Date: 20130603
  Transmission Date: 20140414
  Serious: Yes (Other)
  Sender: FDA-Public Use
  Company Number: RO-BAYER-2013-064164

PATIENT
  Age: 26 Year
  Sex: Female

DRUGS (1)
  1. QLAIRA [Suspect]
     Indication: CONTRACEPTION
     Dosage: 1 DF, QD
     Route: 048
     Dates: start: 20130310, end: 20130513

REACTIONS (5)
  - Depression suicidal [Recovered/Resolved with Sequelae]
  - Weight increased [Recovering/Resolving]
  - Cystitis haemorrhagic [Recovering/Resolving]
  - Oedema [Recovering/Resolving]
  - Brain oedema [Recovering/Resolving]
